FAERS Safety Report 5946193-6 (Version None)
Quarter: 2008Q4

REPORT INFORMATION
  Report Type: 
  Country: None (occurrence: None)
  Receive Date: 20081110
  Receipt Date: 20081030
  Transmission Date: 20090506
  Serious: Yes (Hospitalization, Other)
  Sender: FDA-Public Use
  Company Number: IE-JNJFOC-20080805494

PATIENT
  Age: 6 Decade
  Sex: Female

DRUGS (1)
  1. DOXORUBICIN HCL [Suspect]
     Indication: OVARIAN CANCER
     Route: 042

REACTIONS (4)
  - SKIN INFECTION [None]
  - SKIN TOXICITY [None]
  - SKIN ULCER [None]
  - SUPERINFECTION FUNGAL [None]
